FAERS Safety Report 10243810 (Version 1)
Quarter: 2014Q2

REPORT INFORMATION
  Report Type: Spontaneous
  Country: US (occurrence: US)
  Receive Date: 20140618
  Receipt Date: 20140618
  Transmission Date: 20141212
  Serious: Yes (Death)
  Sender: FDA-Public Use
  Company Number: US-PFIZER INC-2014163796

PATIENT
  Age: 59 Year
  Sex: Male

DRUGS (4)
  1. SUTENT [Suspect]
     Indication: RENAL CANCER
     Dosage: 12.5 UNK, UNK
     Dates: start: 20140523
  2. LEVAQUIN [Concomitant]
  3. AUGMENTIN [Concomitant]
  4. ALLOPURINOL [Concomitant]

REACTIONS (1)
  - Death [Fatal]
